FAERS Safety Report 9097625 (Version 2)
Quarter: 2013Q1

REPORT INFORMATION
  Report Type: Spontaneous
  Country: CA (occurrence: CA)
  Receive Date: 20130212
  Receipt Date: 20130228
  Transmission Date: 20140127
  Serious: Yes (Other)
  Sender: FDA-Public Use
  Company Number: PHHY2011CA27452

PATIENT
  Age: 73 Year
  Sex: Female

DRUGS (4)
  1. ACLASTA [Suspect]
     Indication: OSTEOPOROSIS
     Dosage: UNK
     Route: 042
     Dates: start: 20090121
  2. ACLASTA [Suspect]
     Dosage: UNK
     Route: 042
     Dates: start: 20100324
  3. ACLASTA [Suspect]
     Dosage: UNK
     Route: 042
     Dates: start: 20110323
  4. ACLASTA [Suspect]
     Dosage: UNK
     Route: 042
     Dates: start: 20120404

REACTIONS (5)
  - Fall [Unknown]
  - Pelvic fracture [Unknown]
  - Dizziness [Unknown]
  - Feeling hot [Unknown]
  - Headache [Unknown]
